FAERS Safety Report 4733638-2 (Version None)
Quarter: 2005Q3

REPORT INFORMATION
  Report Type: 
  Country: None (occurrence: None)
  Receive Date: 20050729
  Receipt Date: 20050615
  Transmission Date: 20060218
  Serious: No
  Sender: FDA-Public Use
  Company Number: COT_0110_2005

PATIENT
  Age: 26 Year
  Sex: Female
  Weight: 63.5036 kg

DRUGS (9)
  1. VENTAVIS [Suspect]
     Indication: PULMONARY HYPERTENSION
     Dosage: DF Q3HR IH
     Route: 055
  2. TRACLEER [Concomitant]
  3. ALBUTEROL [Concomitant]
  4. DYAZIDE [Concomitant]
  5. PREVACID [Concomitant]
  6. ZAROXOLYN [Concomitant]
  7. K-DUR 10 [Concomitant]
  8. TOPROL-XL [Concomitant]
  9. HUMULIN R [Concomitant]

REACTIONS (2)
  - BACK PAIN [None]
  - SHOULDER PAIN [None]
